FAERS Safety Report 5191065-0 (Version None)
Quarter: 2006Q4

REPORT INFORMATION
  Report Type: 
  Country: None (occurrence: None)
  Receive Date: 20061218
  Receipt Date: 20061218
  Transmission Date: 20070319
  Serious: Yes (Hospitalization)
  Sender: FDA-Public Use
  Company Number: None

PATIENT
  Age: 53 Year
  Sex: Male
  Weight: 63.9572 kg

DRUGS (16)
  1. LISINOPRIL [Suspect]
     Indication: HYPERTENSION
     Dosage: 40 MG  DAILY  PO
     Route: 048
     Dates: start: 20061115, end: 20061215
  2. FUROSEMIDE [Suspect]
     Indication: HYPERTENSION
     Dosage: 80 MG  DAILY  PO
     Route: 048
     Dates: start: 20061115, end: 20061130
  3. ALBUTEROL [Concomitant]
  4. BUPROPION HCL [Concomitant]
  5. FORMOTEROL [Concomitant]
  6. GUAIFENESIN [Concomitant]
  7. MOMETASONE FUROATE [Concomitant]
  8. MONTELUKAST [Concomitant]
  9. HYDROCODONE BITARTRATE + ACETAMINOPHEN [Concomitant]
  10. POTASSIUM CHLORIDE [Concomitant]
  11. FOLIC ACID [Concomitant]
  12. M.V.I. [Concomitant]
  13. THIAMINE [Concomitant]
  14. OMEPRAZOLE [Concomitant]
  15. PREDNISOLONE [Concomitant]
  16. ASPIRIN [Concomitant]

REACTIONS (11)
  - CARDIAC FAILURE CONGESTIVE [None]
  - CHEST PAIN [None]
  - DECREASED APPETITE [None]
  - DIZZINESS [None]
  - FATIGUE [None]
  - FIBRIN D DIMER INCREASED [None]
  - HYPOTENSION [None]
  - ORAL INTAKE REDUCED [None]
  - PAINFUL RESPIRATION [None]
  - PHARYNGOLARYNGEAL PAIN [None]
  - RENAL FAILURE ACUTE [None]
